FAERS Safety Report 10243056 (Version 1)
Quarter: 2014Q2

REPORT INFORMATION
  Report Type: Spontaneous
  Country: US (occurrence: US)
  Receive Date: 20140618
  Receipt Date: 20140618
  Transmission Date: 20141212
  Serious: Yes (Other)
  Sender: FDA-Public Use
  Company Number: US-SHIRE-US201402965

PATIENT
  Age: 40 Year
  Sex: Female
  Weight: 68.27 kg

DRUGS (5)
  1. CINRYZE [Suspect]
     Indication: HEREDITARY ANGIOEDEMA
     Dosage: 1000 UNITS, OTHER (EVERY 2 DAYS)
     Route: 042
     Dates: start: 201212
  2. CINRYZE [Suspect]
     Indication: PROPHYLAXIS
  3. XANAX [Concomitant]
     Indication: STRESS
     Dosage: 0.4 MG, AS REQ^D
     Route: 048
  4. TRAMADOL [Concomitant]
     Indication: PAIN
     Dosage: 50 MG, 4X/DAY:QID
     Route: 048
  5. BENTYL [Concomitant]
     Indication: ABDOMINAL PAIN UPPER
     Dosage: 10 MG, 1X/DAY:QD
     Route: 065

REACTIONS (4)
  - Loss of consciousness [Recovered/Resolved]
  - Vertigo [Recovering/Resolving]
  - Inappropriate schedule of drug administration [Not Recovered/Not Resolved]
  - Hot flush [Recovered/Resolved]
